FAERS Safety Report 6059105-4 (Version None)
Quarter: 2009Q1

REPORT INFORMATION
  Report Type: 
  Country: None (occurrence: None)
  Receive Date: 20090130
  Receipt Date: 20090120
  Transmission Date: 20090719
  Serious: Yes (Other)
  Sender: FDA-Public Use
  Company Number: BR-PFIZER INC-2008160736

PATIENT

DRUGS (5)
  1. FRONTAL [Suspect]
     Indication: PANIC DISORDER
     Dosage: UNK
     Route: 048
     Dates: start: 19980101
  2. FRONTAL [Suspect]
     Indication: FEAR
  3. FRONTAL [Suspect]
     Indication: PHOBIA
  4. FRONTAL [Suspect]
     Indication: ANXIETY
  5. PAROXETINE [Suspect]
     Dosage: UNK
     Dates: start: 19980101, end: 20020101

REACTIONS (8)
  - AGORAPHOBIA [None]
  - ANXIETY [None]
  - DRUG DEPENDENCE [None]
  - FEELING ABNORMAL [None]
  - HALLUCINATION, VISUAL [None]
  - PANIC REACTION [None]
  - SOMNOLENCE [None]
  - TREMOR [None]
